FAERS Safety Report 8535059-3 (Version None)
Quarter: 2012Q3

REPORT INFORMATION
  Report Type: 
  Country: None (occurrence: None)
  Receive Date: 20120724
  Receipt Date: 20070611
  Transmission Date: 20120928
  Serious: Yes (Other)
  Sender: FDA-Public Use
  Company Number: CO-PFIZER INC-2012177504

PATIENT
  Age: 70 Year
  Sex: Female

DRUGS (5)
  1. LIPITOR [Suspect]
     Dosage: 10 MG, ONCE DAILY
     Route: 065
  2. OLMESARTAN MEDOXOMIL AND HYDROCHLOROTHIZIDE [Suspect]
     Dosage: [OLMESARTAN MEDOXOMIL 20 MG]/ [HYDROCHLOROTHIAZIDE 12.5 MG] ONCE DAILY
     Route: 065
  3. ACCUPRIL [Suspect]
     Dosage: 20 MG, TWICE DAILY
     Route: 065
  4. LIPITOR [Suspect]
     Dosage: 20 MG, ONCE DAILY
     Route: 065
  5. ACETYLSALICYLIC ACID [Concomitant]
     Dosage: 100 MG, ONCE DAILY
     Route: 065

REACTIONS (3)
  - RENAL FAILURE CHRONIC [None]
  - HYPERCHOLESTEROLAEMIA [None]
  - DIZZINESS [None]
